FAERS Safety Report 12494000 (Version 1)
Quarter: 2016Q2

REPORT INFORMATION
  Report Type: Report from Study
  Country: JP (occurrence: JP)
  Receive Date: 20160623
  Receipt Date: 20160623
  Transmission Date: 20160815
  Serious: Yes (Death, Hospitalization, Other)
  Sender: FDA-Public Use
  Company Number: JP-PFIZER INC-2016255921

PATIENT
  Age: 78 Year
  Sex: Male
  Weight: 45 kg

DRUGS (1)
  1. BOSULIF [Suspect]
     Active Substance: BOSUTINIB MONOHYDRATE
     Indication: CHRONIC MYELOID LEUKAEMIA
     Dosage: 300 MG, DAILY
     Dates: start: 20160419, end: 20160509

REACTIONS (6)
  - Disease progression [Fatal]
  - Chronic myeloid leukaemia [Fatal]
  - Renal impairment [Not Recovered/Not Resolved]
  - Melaena [Recovering/Resolving]
  - Respiratory failure [Not Recovered/Not Resolved]
  - Tumour lysis syndrome [Recovered/Resolved]

NARRATIVE: CASE EVENT DATE: 20160421
